FAERS Safety Report 7303775-7 (Version None)
Quarter: 2011Q1

REPORT INFORMATION
  Report Type: 
  Country: None (occurrence: None)
  Receive Date: 20110221
  Receipt Date: 20110216
  Transmission Date: 20110831
  Serious: Yes (Hospitalization)
  Sender: FDA-Public Use
  Company Number: US-BRISTOL-MYERS SQUIBB COMPANY-15554363

PATIENT
  Age: 70 Year
  Sex: Male
  Weight: 82 kg

DRUGS (11)
  1. SPIRIVA [Concomitant]
     Route: 055
  2. CETUXIMAB [Suspect]
     Indication: NON-SMALL CELL LUNG CANCER
     Dosage: INTERUPTED ON 27OCT10;RESTART ON 03NOV10
     Route: 042
     Dates: start: 20100816
  3. JANUMET [Concomitant]
     Dosage: 1DF= 50/1000 MG
     Route: 048
  4. MEGACE [Concomitant]
     Route: 048
  5. DOXYCYCLINE [Concomitant]
     Route: 048
  6. ASPIRIN [Concomitant]
     Route: 048
  7. PACLITAXEL [Suspect]
     Indication: NON-SMALL CELL LUNG CANCER
     Route: 042
     Dates: start: 20100816, end: 20101020
  8. CARBOPLATIN [Suspect]
     Indication: NON-SMALL CELL LUNG CANCER
     Route: 042
     Dates: start: 20100816, end: 20101020
  9. COREG [Concomitant]
     Route: 048
  10. SYMBICORT [Concomitant]
     Dosage: 2DF= 2 PUFFS
     Route: 055
  11. PLAVIX [Concomitant]
     Route: 048

REACTIONS (1)
  - MUSCULAR WEAKNESS [None]
